FAERS Safety Report 7720147-1 (Version None)
Quarter: 2011Q3

REPORT INFORMATION
  Report Type: 
  Country: None (occurrence: None)
  Receive Date: 20110824
  Receipt Date: 20110810
  Transmission Date: 20111222
  Serious: Yes (Other)
  Sender: FDA-Public Use
  Company Number: 2011AP001743

PATIENT
  Sex: Female

DRUGS (18)
  1. FUROSEMIDE [Concomitant]
  2. INSULIN ASPART (INSULIN ASPART) [Concomitant]
  3. ALENDRONATE SODIUM [Suspect]
     Indication: PRODUCT USED FOR UNKNOWN INDICATION
     Dosage: 70 MG
  4. FEMARA [Suspect]
     Indication: BREAST CANCER
     Dosage: 2.5 MG; BID PO
     Route: 048
     Dates: start: 20100416
  5. LACTULOSE [Concomitant]
  6. CALCIUM CARBONATE [Concomitant]
  7. VALSARTAN [Concomitant]
  8. WARFARIN SODIUM [Concomitant]
  9. ALBUTEROL SULATE [Concomitant]
  10. BISOPROLOL FUMARATE [Concomitant]
  11. NITROGLYCERIN [Concomitant]
  12. CODEINE PHOSPHATE (CODEINE PHOSPHATE) [Concomitant]
  13. DIGOXIN [Concomitant]
  14. PRAVASTATIN [Concomitant]
  15. ACETAMINOPHEN [Concomitant]
  16. ERYTHROMYCIN [Concomitant]
  17. COLECALCIFEROL (COLECALCIFEROL) [Concomitant]
  18. SPIRONOLACTONE [Concomitant]

REACTIONS (12)
  - BLEPHARITIS [None]
  - ARTHRALGIA [None]
  - RENAL DISORDER [None]
  - LIVER DISORDER [None]
  - MUSCULOSKELETAL PAIN [None]
  - OEDEMA PERIPHERAL [None]
  - MACULAR DEGENERATION [None]
  - IRRITABILITY [None]
  - DIABETES MELLITUS [None]
  - CARDIAC FAILURE [None]
  - AMNESIA [None]
  - NIGHT SWEATS [None]
